FAERS Safety Report 8059759 (Version 4)
Quarter: 2013Q1

REPORT INFORMATION
  Report Type: Spontaneous
  Country: US (occurrence: US)
  Receive Date: 20110728
  Receipt Date: 20130212
  Transmission Date: 20140127
  Serious: Yes (Hospitalization, Other)
  Sender: FDA-Public Use
  Company Number: US-US-EMD SERONO, INC.-7072394

PATIENT
  Age: 64 None
  Sex: Female
  Weight: 77 kg

DRUGS (3)
  1. REBIF [Suspect]
     Indication: MULTIPLE SCLEROSIS
     Route: 058
     Dates: start: 20091020
  2. TYLENOL [Concomitant]
     Indication: PREMEDICATION
  3. WELLBUTRIN [Concomitant]
     Indication: CRYING

REACTIONS (17)
  - Hypertension [Recovered/Resolved]
  - Carotid artery disease [Unknown]
  - Breast disorder [Unknown]
  - Dysphagia [Unknown]
  - Fall [Unknown]
  - Weight decreased [Unknown]
  - Cognitive disorder [Unknown]
  - Muscular weakness [Unknown]
  - Insomnia [Not Recovered/Not Resolved]
  - Night blindness [Unknown]
  - Urinary incontinence [Unknown]
  - Multiple sclerosis relapse [Unknown]
  - Thyroid disorder [Unknown]
  - Headache [Unknown]
  - Depression [Not Recovered/Not Resolved]
  - Injection site mass [Unknown]
  - Injection site erythema [Unknown]
